FAERS Safety Report 4504086-5 (Version None)
Quarter: 2004Q4

REPORT INFORMATION
  Report Type: 
  Country: None (occurrence: None)
  Receive Date: 20041118
  Receipt Date: 20041109
  Transmission Date: 20050328
  Serious: Yes (Other)
  Sender: FDA-Public Use
  Company Number: US-JNJFOC-20040401645

PATIENT
  Sex: Male
  Weight: 98.88 kg

DRUGS (4)
  1. REMICADE [Suspect]
     Indication: CROHN'S DISEASE
     Dosage: 4 INFUSIONS TOTAL
     Route: 042
     Dates: end: 20040223
  2. PREVACID [Concomitant]
  3. CARDURA [Concomitant]
  4. ATENOLOL [Concomitant]
     Indication: HYPERTENSION

REACTIONS (3)
  - ERYTHEMA [None]
  - LEUKAEMIA [None]
  - MYCOSIS FUNGOIDES [None]
